FAERS Safety Report 12592709 (Version 14)
Quarter: 2023Q2

REPORT INFORMATION
  Report Type: Spontaneous
  Country: US (occurrence: US)
  Receive Date: 20160726
  Receipt Date: 20230509
  Transmission Date: 20230722
  Serious: Yes (Other)
  Sender: FDA-Public Use
  Company Number: US-PFIZER INC-2016336939

PATIENT
  Age: 82 Year
  Sex: Female
  Weight: 65 kg

DRUGS (6)
  1. IBRANCE [Suspect]
     Active Substance: PALBOCICLIB
     Indication: Breast cancer metastatic
     Dosage: 100 MG, CYCLIC (DAYS 1-21 Q28DAYS)
     Route: 048
     Dates: start: 20160629
  2. IBRANCE [Suspect]
     Active Substance: PALBOCICLIB
     Dosage: 100 MG, CYCLIC (DAYS 1-21 Q28DAYS)
     Route: 048
     Dates: start: 20160629
  3. IBRANCE [Suspect]
     Active Substance: PALBOCICLIB
     Dosage: 100 MG, CYCLIC (DAY 1-21 Q 28 DAYS)
     Route: 048
     Dates: start: 20160629
  4. IBRANCE [Suspect]
     Active Substance: PALBOCICLIB
     Dosage: 100 MG, CYCLIC (DAY 1-21 Q 28 DAYS)
     Route: 048
     Dates: start: 20160629
  5. IBRANCE [Suspect]
     Active Substance: PALBOCICLIB
     Dosage: 100 MG, CYCLIC [DAYS 1-21 Q28 DAYS]
     Route: 048
     Dates: start: 20160629
  6. IBRANCE [Suspect]
     Active Substance: PALBOCICLIB
     Dosage: 75 MG, CYCLIC (D1-21 Q (EVERY) 28 DAYS)
     Route: 048
     Dates: start: 20160629

REACTIONS (9)
  - Clostridium difficile infection [Unknown]
  - Tooth infection [Unknown]
  - Fatigue [Unknown]
  - Diarrhoea [Not Recovered/Not Resolved]
  - Constipation [Unknown]
  - Bowel movement irregularity [Unknown]
  - Decreased appetite [Unknown]
  - Frequent bowel movements [Unknown]
  - Pain in extremity [Not Recovered/Not Resolved]
